FAERS Safety Report 7591819-7 (Version None)
Quarter: 2011Q3

REPORT INFORMATION
  Report Type: 
  Country: None (occurrence: None)
  Receive Date: 20110701
  Receipt Date: 20110701
  Transmission Date: 20111222
  Serious: Yes (Hospitalization)
  Sender: FDA-Public Use
  Company Number: None

PATIENT
  Age: 27 Year
  Sex: Male
  Weight: 154.223 kg

DRUGS (1)
  1. CLOZAPINE [Suspect]
     Indication: SCHIZOAFFECTIVE DISORDER BIPOLAR TYPE
     Dosage: 100MG TWICE DAILY PO
     Route: 048
     Dates: start: 20110601, end: 20110614

REACTIONS (4)
  - ABDOMINAL PAIN [None]
  - DIZZINESS [None]
  - SINUS TACHYCARDIA [None]
  - MYOCARDITIS [None]
